FAERS Safety Report 24825576 (Version 5)
Quarter: 2025Q1

REPORT INFORMATION
  Report Type: Spontaneous
  Country: US (occurrence: US)
  Receive Date: 20250109
  Receipt Date: 20250227
  Transmission Date: 20250409
  Serious: No
  Sender: PFIZER
  Company Number: US-PFIZER INC-202500001967

PATIENT
  Age: 12 Year
  Sex: Male
  Weight: 42.177 kg

DRUGS (1)
  1. GENOTROPIN [Suspect]
     Active Substance: SOMATROPIN
     Indication: Hypopituitarism
     Dates: start: 202411

REACTIONS (4)
  - Device mechanical issue [Unknown]
  - Device physical property issue [Unknown]
  - Pain [Unknown]
  - Fear [Unknown]

NARRATIVE: CASE EVENT DATE: 20250102
